FAERS Safety Report 8360161-9 (Version None)
Quarter: 2012Q2

REPORT INFORMATION
  Report Type: 
  Country: None (occurrence: None)
  Receive Date: 20120515
  Receipt Date: 20120507
  Transmission Date: 20120825
  Serious: Yes (Other)
  Sender: FDA-Public Use
  Company Number: FI-BAYER-2012-044816

PATIENT
  Sex: Female

DRUGS (1)
  1. YASMIN [Suspect]
     Dosage: UNK
     Route: 048
     Dates: start: 20060101

REACTIONS (2)
  - ABORTION SPONTANEOUS [None]
  - PREGNANCY ON ORAL CONTRACEPTIVE [None]
